FAERS Safety Report 4587981-0 (Version None)
Quarter: 2005Q1

REPORT INFORMATION
  Report Type: 
  Country: None (occurrence: None)
  Receive Date: 20050221
  Receipt Date: 20050124
  Transmission Date: 20050727
  Serious: Yes (Hospitalization)
  Sender: FDA-Public Use
  Company Number: BE-ABBOTT-05P-013-0288126-01

PATIENT
  Sex: Male
  Weight: 93.7 kg

DRUGS (6)
  1. SIBUTRAMINE (BLINDED) [Suspect]
     Indication: OBESITY
     Route: 048
     Dates: start: 20031021, end: 20041129
  2. BISOPROLOL FUMARATE [Concomitant]
     Indication: MYOCARDIAL ISCHAEMIA
     Dates: start: 19960101
  3. ACETYLSALICYLIC ACID SRT [Concomitant]
     Indication: MYOCARDIAL ISCHAEMIA
     Dates: start: 19950101
  4. CLOXAZOLAM [Concomitant]
     Indication: SLEEP DISORDER
     Dates: start: 20041101
  5. TRAZODONE HCL [Concomitant]
     Indication: DEPRESSION
     Dates: start: 20041101
  6. DEANXIT [Concomitant]
     Indication: DEPRESSION
     Dates: start: 20041101

REACTIONS (2)
  - CARDIAC FAILURE [None]
  - MITRAL VALVE INCOMPETENCE [None]
